FAERS Safety Report 20660698 (Version 1)
Quarter: 2022Q1

REPORT INFORMATION
  Report Type: Spontaneous
  Country: US (occurrence: US)
  Receive Date: 20220331
  Receipt Date: 20220331
  Transmission Date: 20220423
  Serious: Yes (Death, Other)
  Sender: FDA-Public Use
  Company Number: US-PURDUE PHARMA-USA-2021-0290291

PATIENT
  Age: 57 Year
  Sex: Male

DRUGS (24)
  1. OXYCONTIN [Suspect]
     Active Substance: OXYCODONE HYDROCHLORIDE
     Indication: Cancer pain
     Dosage: 60 MG, Q8H
     Route: 048
  2. ACETAMINOPHEN\OXYCODONE HYDROCHLORIDE [Suspect]
     Active Substance: ACETAMINOPHEN\OXYCODONE HYDROCHLORIDE
     Indication: Cancer pain
     Dosage: 10-325 MG
     Route: 065
  3. LIDOCAINE [Suspect]
     Active Substance: LIDOCAINE
     Indication: Cancer pain
     Dosage: LOADING DOSE OF 2 MG/KG FOLLOWED BY 1 MG/KG CONTINUOUS INFUSION
     Route: 042
  4. MORPHINE [Suspect]
     Active Substance: MORPHINE
     Indication: Cancer pain
     Dosage: 720 MG (BASAL RATE 2 MG/HR, DEMAND DOSE 10 MG IV Q20 MIN)
     Route: 042
  5. MORPHINE [Suspect]
     Active Substance: MORPHINE
     Dosage: 744 MG (BASAL RATE 2 MG/HR, DEMAND DOSE 10 MG IV Q20 MIN)
     Route: 042
  6. MORPHINE [Suspect]
     Active Substance: MORPHINE
     Dosage: 1044 MG (BASAL RATE 2 MG/HR, DEMAND DOSE 10 MG IV Q20 MIN)
     Route: 042
  7. MORPHINE [Suspect]
     Active Substance: MORPHINE
     Dosage: 804 MG (10 MG/HR IV / 10 MG IV Q1 HRS)
     Route: 042
  8. MORPHINE [Suspect]
     Active Substance: MORPHINE
     Dosage: 726 MG (15 MG/HR IV / 20 MG IV Q1H PRN)
     Route: 042
  9. HYDROMORPHONE [Suspect]
     Active Substance: HYDROMORPHONE
     Indication: Cancer pain
     Dosage: 291 MG [0.5 MG IV Q10 MIN + 1 MG IV Q4H PRN RESCUE (MAX 5 DOSES WITHIN 24 HOURS)]
     Route: 042
  10. HYDROMORPHONE [Suspect]
     Active Substance: HYDROMORPHONE
     Dosage: 626 MG [0.7 MG IV Q10 MIN + 1 MG IV Q4H PRN RESCUE (MAX 5 DOSES WITHIN 24 HOURS)]
     Route: 042
  11. HYDROMORPHONE [Suspect]
     Active Substance: HYDROMORPHONE
     Dosage: 812 MG [0.5 MG/HR CONTINUOUS INFUSION + DEMAND DOSE 1 MG Q10 MIN + 2 MG IV RESCUE]
     Route: 042
  12. HYDROMORPHONE [Suspect]
     Active Substance: HYDROMORPHONE
     Dosage: 960 MG [0.5 MG/HR CONTINUOUS INFUSION + DEMAND DOSE 1 MG Q10 MIN + HYDROMORPHONE 2 MG IV RESCUE]
     Route: 042
  13. HYDROMORPHONE [Suspect]
     Active Substance: HYDROMORPHONE
     Dosage: 1125 MG [0.5 MG/HR CONTINUOUS INFUSION + DEMAND DOSE 1 MG Q10 MIN + HYDROMORPHONE 2 MG IV RESCUE]
     Route: 042
  14. DIAZEPAM [Suspect]
     Active Substance: DIAZEPAM
     Indication: Cancer pain
     Dosage: 10 MG, Q8H
     Route: 048
  15. DIAZEPAM [Suspect]
     Active Substance: DIAZEPAM
     Dosage: 5 MG, Q6H PRN
     Route: 048
  16. CLONIDINE [Suspect]
     Active Substance: CLONIDINE
     Indication: Cancer pain
     Dosage: 0.1 MG, TID
     Route: 065
  17. CLONIDINE [Suspect]
     Active Substance: CLONIDINE
     Dosage: 0.2 MG, TID
     Route: 065
  18. CLONIDINE [Suspect]
     Active Substance: CLONIDINE
     Dosage: 0.3 MG, TID
     Route: 065
  19. LORAZEPAM [Suspect]
     Active Substance: LORAZEPAM
     Indication: Cancer pain
     Dosage: 1 MG, Q6H
     Route: 042
  20. TRAZODONE [Suspect]
     Active Substance: TRAZODONE HYDROCHLORIDE
     Indication: Cancer pain
     Dosage: 50 MG, HS
     Route: 065
  21. TRAZODONE [Suspect]
     Active Substance: TRAZODONE HYDROCHLORIDE
     Dosage: 100 MG, HS
     Route: 065
  22. TRAMADOL [Suspect]
     Active Substance: TRAMADOL
     Indication: Cancer pain
     Dosage: 100 MG, DAILY
     Route: 065
  23. METHADONE [Suspect]
     Active Substance: METHADONE HYDROCHLORIDE
     Indication: Drug use disorder
     Dosage: 250 MG, DAILY
     Route: 065
     Dates: start: 2017
  24. HEROIN [Suspect]
     Active Substance: DIAMORPHINE
     Indication: Drug use disorder
     Dosage: UNKNOWN
     Route: 058

REACTIONS (6)
  - Death [Fatal]
  - Suicidal ideation [Unknown]
  - Drug ineffective [Unknown]
  - Drug tolerance [Unknown]
  - Emotional distress [Unknown]
  - Pain [Unknown]
